FAERS Safety Report 7674255-4 (Version None)
Quarter: 2011Q3

REPORT INFORMATION
  Report Type: 
  Country: None (occurrence: None)
  Receive Date: 20110810
  Receipt Date: 20110803
  Transmission Date: 20111222
  Serious: Yes (Other)
  Sender: FDA-Public Use
  Company Number: JP-PFIZER INC-2011179654

PATIENT
  Age: 67 Year
  Sex: Male

DRUGS (2)
  1. ESTRACYT [Suspect]
     Route: 048
  2. DRUG, UNSPECIFIED [Suspect]

REACTIONS (1)
  - PULMONARY EMBOLISM [None]
